FAERS Safety Report 5673180-8 (Version None)
Quarter: 2008Q1

REPORT INFORMATION
  Report Type: 
  Country: None (occurrence: None)
  Receive Date: 20080317
  Receipt Date: 20080313
  Transmission Date: 20080703
  Serious: Yes (Hospitalization)
  Sender: FDA-Public Use
  Company Number: SP01838

PATIENT
  Age: 2 Month
  Sex: Male

DRUGS (1)
  1. PEPCID [Suspect]
     Indication: GASTROOESOPHAGEAL REFLUX DISEASE
     Dates: start: 20080306, end: 20080306

REACTIONS (3)
  - CONSTIPATION [None]
  - FLATULENCE [None]
  - LETHARGY [None]
